FAERS Safety Report 20764353 (Version 2)
Quarter: 2022Q2

REPORT INFORMATION
  Report Type: Spontaneous
  Country: HU (occurrence: HU)
  Receive Date: 20220428
  Receipt Date: 20220519
  Transmission Date: 20220721
  Serious: Yes (Other)
  Sender: FDA-Public Use
  Company Number: HU-TEVA-2022-HU-2030179

PATIENT
  Age: 43 Year
  Sex: Female

DRUGS (5)
  1. AZITHROMYCIN [Interacting]
     Active Substance: AZITHROMYCIN
     Indication: COVID-19
     Dosage: 500 MILLIGRAM DAILY;
     Route: 065
  2. FAVIPIRAVIR [Interacting]
     Active Substance: FAVIPIRAVIR
     Indication: COVID-19
     Dosage: 2 X 1600MG ON THE FIRST DAY AND 2 X 600MG DAILY FOR ANOTHER 4 DAYS
     Route: 065
  3. ENOXAPARIN [Suspect]
     Active Substance: ENOXAPARIN
     Indication: COVID-19
     Dosage: .6 ML DAILY;
     Route: 065
  4. VITAMIN D3 [Suspect]
     Active Substance: CHOLECALCIFEROL
     Indication: COVID-19
     Dosage: 8000 IU (INTERNATIONAL UNIT) DAILY;
     Route: 065
  5. COENZYME Q10 [Suspect]
     Active Substance: DIETARY SUPPLEMENT\UBIDECARENONE
     Indication: COVID-19
     Dosage: 2000 MG
     Route: 065

REACTIONS (3)
  - Sinus bradycardia [Recovered/Resolved]
  - Drug interaction [Unknown]
  - Off label use [Unknown]
